FAERS Safety Report 24279029 (Version 1)
Quarter: 2024Q3

REPORT INFORMATION
  Report Type: Spontaneous
  Country: US (occurrence: None)
  Receive Date: 20240830
  Receipt Date: 20240830
  Transmission Date: 20241016
  Serious: No
  Sender: Public
  Company Number: None

PATIENT
  Age: 70 Year
  Sex: Male
  Weight: 127.91 kg

DRUGS (9)
  1. WIXELA INHUB [Suspect]
     Active Substance: FLUTICASONE PROPIONATE\SALMETEROL XINAFOATE
     Indication: Asthma
     Dosage: OTHER STRENGTH : 250/50;?OTHER QUANTITY : 1 DEVICE;?FREQUENCY : AS NEEDED;?OTHER ROUTE : (MOUTH) INH
     Route: 050
     Dates: start: 20240824, end: 20240824
  2. Losartab [Concomitant]
  3. FARXIGA [Concomitant]
     Active Substance: DAPAGLIFLOZIN PROPANEDIOL
  4. METOPROLOL [Concomitant]
  5. MONTELUKAST [Concomitant]
     Active Substance: MONTELUKAST SODIUM
  6. FISH OIL [Concomitant]
  7. One-A-Day Vits [Concomitant]
  8. Magnosium [Concomitant]
  9. Osteo Bi Flex [Concomitant]

REACTIONS (1)
  - Drug ineffective [None]

NARRATIVE: CASE EVENT DATE: 20240824
